FAERS Safety Report 4939383-2 (Version None)
Quarter: 2006Q1

REPORT INFORMATION
  Report Type: 
  Country: None (occurrence: None)
  Receive Date: 20060306
  Receipt Date: 20060222
  Transmission Date: 20060701
  Serious: Yes (Other)
  Sender: FDA-Public Use
  Company Number: 2006RR-01690

PATIENT
  Age: 14 Year
  Sex: Female
  Weight: 40 kg

DRUGS (3)
  1. METFORMIN HCL [Suspect]
     Dosage: 500 MG, 126 TABLETS, ORAL
     Route: 048
  2. DICLOFENAC SODIUM [Suspect]
     Dosage: 75 MG, 14 TABLETS, ORAL
     Route: 048
  3. ATENOLOL [Suspect]
     Dosage: 50 MG, 28 TABLETS, ORAL
     Route: 048

REACTIONS (8)
  - DEPRESSED LEVEL OF CONSCIOUSNESS [None]
  - GLASGOW COMA SCALE ABNORMAL [None]
  - HAEMODIALYSIS [None]
  - HYPOGLYCAEMIA [None]
  - HYPOTENSION [None]
  - LACTIC ACIDOSIS [None]
  - METABOLIC ACIDOSIS [None]
  - MULTIPLE DRUG OVERDOSE [None]
